FAERS Safety Report 22060466 (Version 1)
Quarter: 2023Q1

REPORT INFORMATION
  Report Type: Spontaneous
  Country: ES (occurrence: ES)
  Receive Date: 20230303
  Receipt Date: 20230303
  Transmission Date: 20230417
  Serious: Yes (Other)
  Sender: FDA-Public Use
  Company Number: ES-AMERICAN REGENT INC-2023000548

PATIENT
  Age: 89 Year
  Sex: Female

DRUGS (1)
  1. FERINJECT [Suspect]
     Active Substance: FERRIC CARBOXYMALTOSE
     Indication: Product used for unknown indication
     Dosage: 1000 MG,1 IN 24 HR
     Dates: start: 20230108, end: 20230210

REACTIONS (3)
  - Haemoglobinaemia [Unknown]
  - Wrong schedule [Unknown]
  - Overdose [Unknown]

NARRATIVE: CASE EVENT DATE: 20230108
